FAERS Safety Report 15163445 (Version 2)
Quarter: 2019Q1

REPORT INFORMATION
  Report Type: Spontaneous
  Country: DE (occurrence: DE)
  Receive Date: 20180719
  Receipt Date: 20190117
  Transmission Date: 20190417
  Serious: Yes (Death, Life-Threatening, Hospitalization, Other)
  Sender: FDA-Public Use
  Company Number: DE-SUN PHARMACEUTICAL INDUSTRIES LTD-2018R1-178201

PATIENT
  Age: 73 Year
  Sex: Female
  Weight: 106 kg

DRUGS (50)
  1. OXALIPLATIN. [Suspect]
     Active Substance: OXALIPLATIN
     Dosage: 640 MG, DAILY
     Route: 042
     Dates: start: 20140121, end: 20140121
  2. OXALIPLATIN. [Suspect]
     Active Substance: OXALIPLATIN
     Dosage: 170 MG, UNK
     Route: 042
     Dates: start: 20131029, end: 20131029
  3. 5-FU [Suspect]
     Active Substance: FLUOROURACIL
     Dosage: 1280 MG BOLUS 1900 MG DRIP
     Route: 042
     Dates: start: 20140211, end: 20140212
  4. FOLINIC ACID [Suspect]
     Active Substance: LEUCOVORIN
     Dosage: 720 MG, UNK
     Route: 042
     Dates: start: 20140822, end: 20140823
  5. FOLINIC ACID [Suspect]
     Active Substance: LEUCOVORIN
     Dosage: 720 MG, UNK
     Route: 042
     Dates: start: 20140715, end: 20140716
  6. FOLINIC ACID [Suspect]
     Active Substance: LEUCOVORIN
     Dosage: 800 MG, UNK
     Route: 042
     Dates: start: 20140415, end: 20140416
  7. SODIUM CHLORIDE. [Concomitant]
     Active Substance: SODIUM CHLORIDE
     Indication: BLOOD CREATININE INCREASED
     Dosage: UNK
     Route: 042
     Dates: start: 20141001, end: 20141001
  8. 5-FU [Suspect]
     Active Substance: FLUOROURACIL
     Dosage: 1280 MG BOLUS 1900 MG DRIP
     Route: 042
     Dates: start: 20131119, end: 20131120
  9. 5-FU [Suspect]
     Active Substance: FLUOROURACIL
     Dosage: 720 MG BOLUS 1800 MG DRIP
     Route: 042
     Dates: start: 20140715, end: 20140716
  10. 5-FU [Suspect]
     Active Substance: FLUOROURACIL
     Dosage: 1600 MG BOLUS 2400 MG DRIP
     Route: 042
     Dates: start: 20131008, end: 20131009
  11. FOLINIC ACID [Suspect]
     Active Substance: LEUCOVORIN
     Dosage: 800 MG, UNK
     Route: 042
     Dates: start: 20131008, end: 20131009
  12. FOLINIC ACID [Suspect]
     Active Substance: LEUCOVORIN
     Dosage: 720 MG, UNK
     Route: 042
     Dates: start: 20140930, end: 20141001
  13. LONQUEX [Concomitant]
     Active Substance: LIPEGFILGRASTIM
     Indication: PROPHYLAXIS
     Dosage: UNK
     Route: 058
     Dates: start: 20140716, end: 20140716
  14. GLANDOMED [Concomitant]
     Indication: MUCOSAL INFLAMMATION
     Dosage: UNK
     Route: 065
     Dates: start: 20131029
  15. L-THYROXIN [Concomitant]
     Active Substance: LEVOTHYROXINE SODIUM
     Indication: HYPOTHYROIDISM
     Dosage: DAILY DOSE: 50 ?G MICROGRAM(S) EVERY DAYS
     Route: 048
  16. OXALIPLATIN. [Suspect]
     Active Substance: OXALIPLATIN
     Dosage: 140 MG, UNK
     Route: 042
     Dates: start: 20140121, end: 20140121
  17. 5-FU [Suspect]
     Active Substance: FLUOROURACIL
     Dosage: 1280 MG BOLUS 1900 MG DRIP
     Route: 042
     Dates: start: 20131210, end: 20131211
  18. FOLINIC ACID [Suspect]
     Active Substance: LEUCOVORIN
     Dosage: 800 MG, UNK
     Route: 042
     Dates: start: 20131029, end: 20131030
  19. FOLINIC ACID [Suspect]
     Active Substance: LEUCOVORIN
     Dosage: 640 MG, UNK
     Route: 042
     Dates: start: 20131210, end: 20131211
  20. AVASTIN [Suspect]
     Active Substance: BEVACIZUMAB
     Dosage: DAILY DOSE: 530 MG MILLGRAM(S) EVERY 2 WEEKS
     Route: 042
     Dates: start: 20131008, end: 20131008
  21. OXALIPLATIN. [Suspect]
     Active Substance: OXALIPLATIN
     Dosage: DAILY DOSE: 140 MG MILLGRAM(S) EVERY 2 WEEKS
     Route: 042
     Dates: start: 20140326, end: 20140327
  22. OXALIPLATIN. [Suspect]
     Active Substance: OXALIPLATIN
     Dosage: 140 MG, UNK
     Route: 042
     Dates: start: 20131119, end: 20131119
  23. 5-FU [Suspect]
     Active Substance: FLUOROURACIL
     Indication: COLORECTAL CANCER METASTATIC
     Dosage: 1600 MG BOLUS 2400 MG DRIP
     Route: 042
     Dates: start: 20131029, end: 20131030
  24. 5-FU [Suspect]
     Active Substance: FLUOROURACIL
     Dosage: 1600 MG BOLUS 2400 MG DRIP
     Route: 042
     Dates: start: 20140326, end: 20140327
  25. 5-FU [Suspect]
     Active Substance: FLUOROURACIL
     Dosage: 720 MG BOLUS 1800 MG DRIP
     Route: 042
     Dates: start: 20140930, end: 20141001
  26. 5-FU [Suspect]
     Active Substance: FLUOROURACIL
     Dosage: 1600 MG BOLUS 2400 MG DRIP
     Route: 042
     Dates: start: 20140415, end: 20140415
  27. 5-FU [Suspect]
     Active Substance: FLUOROURACIL
     Dosage: 720 MG BOLUS 1800 MG DRIP
     Route: 042
     Dates: start: 20140603, end: 20140604
  28. 5-FU [Suspect]
     Active Substance: FLUOROURACIL
     Dosage: 720 MG BOLUS 1800 MG DRIP
     Route: 042
     Dates: start: 20140617, end: 20140618
  29. 5-FU [Suspect]
     Active Substance: FLUOROURACIL
     Dosage: 1280 MG BOLUS 1900 MG DRIP
     Route: 042
     Dates: start: 20140121, end: 20140122
  30. FOLINIC ACID [Suspect]
     Active Substance: LEUCOVORIN
     Dosage: 720 MG, UNK
     Route: 042
     Dates: start: 20140701, end: 20140702
  31. FOLINIC ACID [Suspect]
     Active Substance: LEUCOVORIN
     Dosage: 720 MG, UNK
     Route: 042
     Dates: start: 20140617, end: 20140618
  32. NOVAMINSULFON [Concomitant]
     Active Substance: METAMIZOLE
     Indication: PAIN
     Dosage: DAILY DOSE: 90 GTT DROP(S) EVERY DAYS
     Route: 048
  33. OXALIPLATIN. [Suspect]
     Active Substance: OXALIPLATIN
     Dosage: 140 MG, UNK
     Route: 042
     Dates: start: 20131210, end: 20131210
  34. OXALIPLATIN. [Suspect]
     Active Substance: OXALIPLATIN
     Dosage: 170 MG, UNK
     Route: 042
     Dates: start: 20131008, end: 20131008
  35. 5-FU [Suspect]
     Active Substance: FLUOROURACIL
     Dosage: 720 MG BOLUS 1800 MG DRIP
     Route: 042
     Dates: start: 20140701, end: 20140702
  36. FOLINIC ACID [Suspect]
     Active Substance: LEUCOVORIN
     Dosage: 640 MG, UNK
     Route: 042
     Dates: start: 20131119, end: 20131120
  37. PANTOZOL [Concomitant]
     Active Substance: PANTOPRAZOLE SODIUM
     Indication: PROPHYLAXIS
     Dosage: DAILY DOSE: 40 MG MILLGRAM(S) EVERY DAYS
     Route: 048
  38. TINCTURE OF OPIUM [Concomitant]
     Active Substance: OPIUM
     Indication: PRODUCT USED FOR UNKNOWN INDICATION
     Dosage: UNK
     Route: 048
     Dates: start: 20140227
  39. FOLINIC ACID [Suspect]
     Active Substance: LEUCOVORIN
     Indication: COLORECTAL CANCER METASTATIC
     Dosage: 640 MG, UNK
     Route: 042
     Dates: start: 20140121, end: 20140122
  40. FOLINIC ACID [Suspect]
     Active Substance: LEUCOVORIN
     Dosage: 720 MG, UNK
     Route: 042
     Dates: start: 20140916, end: 20140917
  41. FOLINIC ACID [Suspect]
     Active Substance: LEUCOVORIN
     Dosage: 640 MG, UNK
     Route: 042
     Dates: start: 20140211, end: 20140212
  42. FOLINIC ACID [Suspect]
     Active Substance: LEUCOVORIN
     Dosage: 720 MG, UNK
     Route: 042
     Dates: start: 20140603, end: 20140604
  43. AVASTIN [Suspect]
     Active Substance: BEVACIZUMAB
     Indication: COLORECTAL CANCER METASTATIC
     Dosage: DAILY DOSE: 420 MG MILLGRAM(S) EVERY 2 WEEKS
     Route: 042
     Dates: start: 20131210, end: 20131210
  44. NEULASTA [Concomitant]
     Active Substance: PEGFILGRASTIM
     Indication: PROPHYLAXIS
     Dosage: DAILY DOSE: 6 MG MILLGRAM(S) EVERY DAYS
     Route: 058
     Dates: start: 20140605, end: 20140703
  45. RAMIPRIL. [Concomitant]
     Active Substance: RAMIPRIL
     Indication: HYPERTENSION
     Dosage: DAILY DOSE: 2.5 MG MILLGRAM(S) EVERY DAYS
     Route: 048
  46. OXALIPLATIN. [Suspect]
     Active Substance: OXALIPLATIN
     Indication: COLORECTAL CANCER METASTATIC
     Dosage: 140 MG, UNK
     Route: 042
     Dates: start: 20140211, end: 20140211
  47. 5-FU [Suspect]
     Active Substance: FLUOROURACIL
     Dosage: 720 MG BOLUS 1800 MG DRIP
     Route: 042
     Dates: start: 20140916, end: 20140917
  48. 5-FU [Suspect]
     Active Substance: FLUOROURACIL
     Dosage: 720 MG BOLUS 1800 MG DRIP ()
     Route: 042
     Dates: start: 20140822, end: 20140823
  49. FOLINIC ACID [Suspect]
     Active Substance: LEUCOVORIN
     Dosage: DAILY DOSE: 800 MG MILLGRAM(S) EVERY 2 WEEKS
     Route: 042
     Dates: start: 20140326, end: 20140327
  50. URO-TABLINEN [Concomitant]
     Indication: URINARY TRACT INFECTION
     Dosage: DAILY DOSE: 50 MG MILLGRAM(S) EVERY DAYS
     Route: 048

REACTIONS (8)
  - Neutropenia [Recovered/Resolved]
  - Anaemia [Recovered/Resolved]
  - Diarrhoea [Recovered/Resolved]
  - Febrile neutropenia [Recovered/Resolved]
  - Malignant neoplasm progression [Fatal]
  - Death [Fatal]
  - Neutropenia [Recovered/Resolved]
  - Pulmonary embolism [Recovered/Resolved]

NARRATIVE: CASE EVENT DATE: 20131030
